FAERS Safety Report 8455838-0 (Version None)
Quarter: 2012Q2

REPORT INFORMATION
  Report Type: 
  Country: None (occurrence: None)
  Receive Date: 20120621
  Receipt Date: 20120615
  Transmission Date: 20120825
  Serious: Yes (Hospitalization)
  Sender: FDA-Public Use
  Company Number: GB-TEVA-343140ISR

PATIENT
  Sex: Female

DRUGS (2)
  1. VALPROIC ACID [Suspect]
     Indication: EPILEPSY
     Dates: start: 19950301
  2. NORMOSANG [Suspect]
     Indication: PORPHYRIA ACUTE
     Route: 042
     Dates: start: 19960301, end: 19960301

REACTIONS (2)
  - THROMBOCYTOPENIA [None]
  - INJECTION SITE THROMBOSIS [None]
